FAERS Safety Report 9258185 (Version 1)
Quarter: 2013Q1

REPORT INFORMATION
  Report Type: Spontaneous
  Country: US (occurrence: None)
  Receive Date: 20121212
  Receipt Date: 20121212
  Transmission Date: 20140127
  Serious: No
  Sender: FDA-Public Use
  Company Number: 1209USA004127

PATIENT
  Age: 49 Year
  Sex: Male

DRUGS (3)
  1. PEG-INTRON [Suspect]
     Indication: HEPATITIS C
     Route: 058
     Dates: start: 20120831
  2. RIBAVIRIN [Suspect]
     Indication: HEPATITIS C
     Route: 048
     Dates: start: 20120831
  3. VICTRELIS [Suspect]
     Indication: HEPATITIS C
     Route: 048
     Dates: start: 20120918

REACTIONS (19)
  - Malaise [None]
  - Decreased appetite [None]
  - Weight decreased [None]
  - Fatigue [None]
  - Headache [None]
  - Fatigue [None]
  - Asthenia [None]
  - Tremor [None]
  - Dizziness [None]
  - Abdominal discomfort [None]
  - Nausea [None]
  - Rash [None]
  - Pruritus [None]
  - Weight decreased [None]
  - Hypotension [None]
  - Memory impairment [None]
  - Dry mouth [None]
  - Dysgeusia [None]
  - Drug dose omission [None]
